FAERS Safety Report 6970244-3 (Version None)
Quarter: 2010Q3

REPORT INFORMATION
  Report Type: 
  Country: None (occurrence: None)
  Receive Date: 20100908
  Receipt Date: 20100825
  Transmission Date: 20110219
  Serious: Yes (Hospitalization)
  Sender: FDA-Public Use
  Company Number: PHHY2010JP49937

PATIENT
  Age: 58 Year
  Sex: Male

DRUGS (3)
  1. DIOVAN [Suspect]
     Indication: HYPERTENSION
     Dosage: 80 MG DAILY
     Route: 048
     Dates: start: 20100614, end: 20100707
  2. URALYT [Concomitant]
     Indication: GOUT
     Dosage: 1 G, UNK
     Route: 048
     Dates: start: 20040101
  3. BENZBROMARONE [Concomitant]
     Dosage: 50 MG, UNK
     Route: 048

REACTIONS (9)
  - DERMATITIS EXFOLIATIVE [None]
  - ERYTHEMA [None]
  - ERYTHEMA OF EYELID [None]
  - EYELID OEDEMA [None]
  - EYELIDS PRURITUS [None]
  - OEDEMA [None]
  - PIGMENTATION DISORDER [None]
  - PRURITUS [None]
  - RASH [None]
